FAERS Safety Report 7729007-3 (Version None)
Quarter: 2011Q3

REPORT INFORMATION
  Report Type: 
  Country: None (occurrence: None)
  Receive Date: 20110906
  Receipt Date: 20110824
  Transmission Date: 20111222
  Serious: Yes (Other)
  Sender: FDA-Public Use
  Company Number: FR-JNJFOC-20110812519

PATIENT
  Age: 15 Year
  Sex: Female

DRUGS (4)
  1. RISPERDAL [Suspect]
     Route: 048
     Dates: start: 20110809, end: 20110818
  2. RISPERDAL [Suspect]
     Indication: ABNORMAL BEHAVIOUR
     Route: 048
     Dates: start: 20110818
  3. RISPERDAL [Suspect]
     Route: 048
  4. XANAX [Concomitant]
     Route: 048

REACTIONS (2)
  - GALACTORRHOEA [None]
  - SUICIDE ATTEMPT [None]
